FAERS Safety Report 15518658 (Version 3)
Quarter: 2020Q1

REPORT INFORMATION
  Report Type: Report from Study
  Country: BE (occurrence: BE)
  Receive Date: 20181017
  Receipt Date: 20200124
  Transmission Date: 20200409
  Serious: Yes (Other)
  Sender: FDA-Public Use
  Company Number: BE-MYLANLABS-2018M1077509

PATIENT
  Sex: Female
  Weight: 88 kg

DRUGS (10)
  1. MONURIL [Concomitant]
     Active Substance: FOSFOMYCIN TROMETHAMINE
     Indication: URINARY TRACT INFECTION
     Dosage: UNK
     Route: 065
     Dates: start: 20161013, end: 20161013
  2. BEVACIZUMAB. [Suspect]
     Active Substance: BEVACIZUMAB
     Indication: OVARIAN CANCER
     Dosage: 1230 MG, Q3W
     Route: 042
     Dates: start: 20150424, end: 20150526
  3. CARBOPLATIN. [Suspect]
     Active Substance: CARBOPLATIN
     Indication: OVARIAN CANCER
     Dosage: UNK UNK, Q3W (480 AUC)
     Route: 042
     Dates: start: 20150402, end: 20150526
  4. NEUPOGEN [Concomitant]
     Active Substance: FILGRASTIM
     Indication: NEUTROPENIA
     Dosage: UNK
     Dates: start: 20150504, end: 20160117
  5. PACLITAXEL. [Suspect]
     Active Substance: PACLITAXEL
     Dosage: UNK
  6. METATOP                            /00571201/ [Concomitant]
     Indication: INSOMNIA
     Dosage: UNK
     Dates: start: 201505, end: 201505
  7. CIPROXINE                          /00697201/ [Concomitant]
     Active Substance: CIPROFLOXACIN
     Indication: URINARY TRACT INFECTION
     Dosage: UNK
     Dates: start: 20191021, end: 20191021
  8. BEFACT                             /01525301/ [Concomitant]
     Indication: PARAESTHESIA
     Dosage: UNK
     Route: 065
     Dates: start: 201603, end: 201612
  9. ARANESP [Concomitant]
     Active Substance: DARBEPOETIN ALFA
     Indication: ANAEMIA
     Dosage: UNK
     Dates: start: 20150421, end: 20160122
  10. PACLITAXEL. [Suspect]
     Active Substance: PACLITAXEL
     Indication: OVARIAN CANCER
     Dosage: LAST DOSE ON 08/DEC/2016
     Route: 042
     Dates: start: 20150402, end: 20150526

REACTIONS (17)
  - Hypoventilation [Recovered/Resolved]
  - Neutropenia [Recovered/Resolved]
  - Troponin T increased [Not Recovered/Not Resolved]
  - Paraesthesia [Recovered/Resolved]
  - Arthralgia [Recovered/Resolved]
  - Femoral neck fracture [Not Recovered/Not Resolved]
  - Urinary tract infection [Recovered/Resolved]
  - N-terminal prohormone brain natriuretic peptide increased [Not Recovered/Not Resolved]
  - Insomnia [Recovered/Resolved]
  - Asthenia [Not Recovered/Not Resolved]
  - Hyponatraemia [Not Recovered/Not Resolved]
  - Anaemia [Recovered/Resolved]
  - Myalgia [Recovered/Resolved]
  - Depression [Not Recovered/Not Resolved]
  - Leukopenia [Recovered/Resolved]
  - Platelet count decreased [Recovered/Resolved]
  - Confusional state [Recovered/Resolved]

NARRATIVE: CASE EVENT DATE: 20150424
